FAERS Safety Report 5853507-4 (Version None)
Quarter: 2008Q3

REPORT INFORMATION
  Report Type: 
  Country: None (occurrence: None)
  Receive Date: 20080822
  Receipt Date: 20080605
  Transmission Date: 20090109
  Serious: Yes (Hospitalization)
  Sender: FDA-Public Use
  Company Number: DE-SP-2008-01094

PATIENT
  Age: 63 Year
  Sex: Male

DRUGS (1)
  1. IMMUCYST [Suspect]
     Indication: BLADDER CANCER
     Route: 065
     Dates: end: 20080310

REACTIONS (9)
  - BLADDER CATHETERISATION [None]
  - BOVINE TUBERCULOSIS [None]
  - CHILLS [None]
  - DRY MOUTH [None]
  - HAEMATURIA [None]
  - HEADACHE [None]
  - INJURY [None]
  - RELAPSING FEVER [None]
  - TRANSAMINASES INCREASED [None]
